FAERS Safety Report 4378388-X (Version None)
Quarter: 2004Q2

REPORT INFORMATION
  Report Type: 
  Country: None (occurrence: None)
  Receive Date: 20040616
  Receipt Date: 20040609
  Transmission Date: 20050107
  Serious: Yes (Hospitalization)
  Sender: FDA-Public Use
  Company Number: US-MERCK-0406USA01086

PATIENT
  Sex: Female

DRUGS (2)
  1. ZETIA [Suspect]
     Route: 048
  2. STATIN (UNSPECIFIED) [Concomitant]
     Route: 065

REACTIONS (1)
  - LYMPHOMA [None]
